FAERS Safety Report 13078358 (Version 11)
Quarter: 2017Q4

REPORT INFORMATION
  Report Type: Report from Study
  Country: KR (occurrence: KR)
  Receive Date: 20170102
  Receipt Date: 20171214
  Transmission Date: 20180320
  Serious: Yes (Death, Hospitalization)
  Sender: FDA-Public Use
  Company Number: KR-ROCHE-1864074

PATIENT
  Age: 54 Year
  Sex: Female

DRUGS (26)
  1. TRASTUZUMAB EMTANSINE [Suspect]
     Active Substance: ADO-TRASTUZUMAB EMTANSINE
     Indication: HER-2 POSITIVE BREAST CANCER
     Dosage: MOST RECENT DOSE PRIOR TO EVENT ONSET: 22/NOV/2016 (248.4 MG).?MOST RECENT DOSE PRIOR TO HEMOPHAGOCY
     Route: 042
     Dates: start: 20161122
  2. PANORIN [Concomitant]
     Indication: METASTASES TO BONE
     Route: 065
     Dates: start: 20151027, end: 20161122
  3. XYZAL [Concomitant]
     Active Substance: LEVOCETIRIZINE DIHYDROCHLORIDE
     Indication: RHINITIS
     Route: 065
     Dates: start: 20150421, end: 20161219
  4. CAROL-F [Concomitant]
     Indication: RHINITIS
     Route: 065
     Dates: start: 20161208, end: 20161210
  5. TYLENOL [Concomitant]
     Active Substance: ACETAMINOPHEN
     Indication: PYREXIA
     Route: 065
     Dates: start: 20161206, end: 20161217
  6. MUCOSTA [Concomitant]
     Active Substance: REBAMIPIDE
     Indication: DYSPEPSIA
     Route: 065
     Dates: start: 20161210, end: 20161213
  7. APETROL ES [Concomitant]
     Indication: DECREASED APPETITE
     Route: 065
     Dates: start: 20161207, end: 20161213
  8. MYPOL (ACETAMINOPHEN/CODEINE PHOSPHATE/IBUPROFEN) [Concomitant]
     Indication: BREAST PAIN
     Route: 065
     Dates: start: 20150604, end: 20161219
  9. NEURONTIN (SOUTH KOREA) [Concomitant]
     Indication: BREAST PAIN
     Route: 065
     Dates: start: 20150604, end: 20161219
  10. LANSTON [Concomitant]
     Active Substance: LANSOPRAZOLE
     Indication: DYSPEPSIA
     Route: 065
     Dates: start: 20160517, end: 20161219
  11. ZINC SULFATE [Concomitant]
     Active Substance: ZINC SULFATE\ZINC SULFATE ANHYDROUS
     Indication: DECREASED APPETITE
     Route: 065
     Dates: start: 20161204, end: 20161208
  12. SUPRAX (SOUTH KOREA) [Concomitant]
     Indication: PYREXIA
     Route: 065
     Dates: start: 20161210, end: 20161217
  13. TANTUM (SOUTH KOREA) [Concomitant]
     Indication: MUCOSAL INFLAMMATION
     Route: 065
     Dates: start: 20161206, end: 20161213
  14. DENOGAN [Concomitant]
     Active Substance: PROPACETAMOL HYDROCHLORIDE
     Indication: PYREXIA
     Route: 065
     Dates: start: 20161204, end: 20161208
  15. VOLUVEN (SOUTH KOREA) [Concomitant]
     Indication: HYPOTENSION
     Route: 065
     Dates: start: 20161220, end: 20161220
  16. RBC TRANSFUSION [Concomitant]
     Route: 065
     Dates: start: 20161220, end: 20161220
  17. NORZYME [Concomitant]
     Indication: DYSPEPSIA
     Route: 065
     Dates: start: 20161206, end: 20161206
  18. MULTIBIC [Concomitant]
     Indication: HYPOTENSION
     Route: 065
     Dates: start: 20161219, end: 20161220
  19. MACPERAN [Concomitant]
     Active Substance: METOCLOPRAMIDE HYDROCHLORIDE
     Indication: DYSPEPSIA
     Route: 065
     Dates: start: 20161206, end: 20161206
  20. NORVASC [Concomitant]
     Active Substance: AMLODIPINE BESYLATE
     Indication: HYPERTENSION
     Route: 065
     Dates: start: 20161207, end: 20161211
  21. TRIDOL [Concomitant]
     Active Substance: TRAMADOL HYDROCHLORIDE
     Indication: PAIN
     Route: 065
     Dates: start: 20161206, end: 20161206
  22. VASOPRESSIN INJECTION [Concomitant]
     Active Substance: VASOPRESSIN
     Indication: HYPOTENSION
     Route: 065
     Dates: start: 20161220, end: 20161220
  23. K-CONTIN [Concomitant]
     Indication: BLOOD POTASSIUM
     Route: 065
     Dates: start: 20161205, end: 20161208
  24. MAGNESIUM OXIDE. [Concomitant]
     Active Substance: MAGNESIUM OXIDE
     Indication: CONSTIPATION
     Route: 065
     Dates: start: 20161208, end: 20161210
  25. TAPOCIN [Concomitant]
     Indication: ANTIBIOTIC THERAPY
     Route: 065
     Dates: start: 20161206, end: 20161209
  26. ATEZOLIZUMAB. [Suspect]
     Active Substance: ATEZOLIZUMAB
     Indication: HER-2 POSITIVE BREAST CANCER
     Dosage: MOST RECENT DOSE PRIOR TO EVENT ONSET: 22/NOV/2016, 13/DEC/2016.
     Route: 042
     Dates: start: 20161122

REACTIONS (3)
  - Histiocytosis haematophagic [Fatal]
  - Osteonecrosis of jaw [Not Recovered/Not Resolved]
  - Aspartate aminotransferase increased [Not Recovered/Not Resolved]

NARRATIVE: CASE EVENT DATE: 20161201
